FAERS Safety Report 13668322 (Version 1)
Quarter: 2017Q2

REPORT INFORMATION
  Report Type: Other
  Country: CA (occurrence: CA)
  Receive Date: 20170620
  Receipt Date: 20170620
  Transmission Date: 20170830
  Serious: Yes (Other)
  Sender: FDA-Public Use
  Company Number: CA-APOTEX-2017AP012910

PATIENT
  Sex: Male

DRUGS (1)
  1. APO-METFORMIN - TAB 500MG [Suspect]
     Active Substance: METFORMIN HYDROCHLORIDE
     Indication: HYPERGLYCAEMIA
     Dosage: UNK, QD
     Route: 048

REACTIONS (1)
  - Loss of consciousness [Unknown]
